FAERS Safety Report 8183072-0 (Version None)
Quarter: 2012Q1

REPORT INFORMATION
  Report Type: 
  Country: None (occurrence: None)
  Receive Date: 20120305
  Receipt Date: 20120301
  Transmission Date: 20120608
  Serious: Yes (Other)
  Sender: FDA-Public Use
  Company Number: DE-GENZYME-THYM-1002619

PATIENT
  Age: 21 Year
  Sex: Male

DRUGS (7)
  1. MYCOPHENOLATE MOFETIL [Concomitant]
     Indication: IMMUNOSUPPRESSION
     Route: 048
  2. TACROLIMUS [Concomitant]
     Indication: IMMUNOSUPPRESSION
     Route: 065
  3. THYMOGLOBULIN [Suspect]
     Indication: PROPHYLAXIS AGAINST TRANSPLANT REJECTION
     Dosage: UNK
     Route: 042
  4. CORTICOSTEROIDS [Concomitant]
     Indication: IMMUNOSUPPRESSION
     Route: 065
  5. PREDNISONE TAB [Concomitant]
     Indication: IMMUNOSUPPRESSION
     Route: 065
  6. LIPID LOWERING AGENTS [Concomitant]
     Indication: PRODUCT USED FOR UNKNOWN INDICATION
     Route: 065
  7. ANTIHYPERTENSIVES [Concomitant]
     Indication: BLOOD PRESSURE MANAGEMENT
     Route: 065

REACTIONS (1)
  - ATRIAL THROMBOSIS [None]
